FAERS Safety Report 11396453 (Version 1)
Quarter: 2015Q3

REPORT INFORMATION
  Report Type: Spontaneous
  Country: US (occurrence: US)
  Receive Date: 20150819
  Receipt Date: 20150819
  Transmission Date: 20151125
  Serious: No
  Sender: FDA-Public Use
  Company Number: US-JNJFOC-20150720668

PATIENT
  Age: 50 Year
  Sex: Male
  Weight: 97.52 kg

DRUGS (1)
  1. XARELTO [Suspect]
     Active Substance: RIVAROXABAN
     Indication: THROMBOSIS
     Route: 048
     Dates: start: 20150726

REACTIONS (1)
  - Skin discolouration [Recovered/Resolved]

NARRATIVE: CASE EVENT DATE: 20150727
